FAERS Safety Report 5690543-5 (Version None)
Quarter: 2008Q1

REPORT INFORMATION
  Report Type: 
  Country: None (occurrence: None)
  Receive Date: 20080331
  Receipt Date: 20080331
  Transmission Date: 20080703
  Serious: Yes (Other)
  Sender: FDA-Public Use
  Company Number: None

PATIENT
  Age: 14 Year
  Sex: Female
  Weight: 70.3075 kg

DRUGS (1)
  1. SINGULAIR [Suspect]
     Indication: HYPERSENSITIVITY
     Dosage: ONE TABLET DAILY PO
     Route: 048
     Dates: start: 20071228, end: 20080212

REACTIONS (4)
  - ABNORMAL DREAMS [None]
  - HOMICIDAL IDEATION [None]
  - NIGHTMARE [None]
  - SUICIDAL IDEATION [None]
